FAERS Safety Report 6083893-4 (Version None)
Quarter: 2009Q1

REPORT INFORMATION
  Report Type: 
  Country: None (occurrence: None)
  Receive Date: 20090219
  Receipt Date: 20090206
  Transmission Date: 20090719
  Serious: Yes (Death, Hospitalization)
  Sender: FDA-Public Use
  Company Number: CH-AVENTIS-200910415DE

PATIENT
  Age: 63 Year
  Sex: Male

DRUGS (17)
  1. CLEXANE [Suspect]
     Indication: DRUG USE FOR UNKNOWN INDICATION
     Dosage: DOSE: 2X0.6
     Route: 058
  2. REVLIMID [Suspect]
     Indication: PLASMACYTOMA
     Route: 048
     Dates: start: 20081105, end: 20081128
  3. REVLIMID [Suspect]
     Route: 048
     Dates: start: 20081211, end: 20081231
  4. DEXAMETHASONE [Suspect]
     Indication: PLASMACYTOMA
     Route: 048
  5. SAROTEN [Suspect]
     Indication: DRUG USE FOR UNKNOWN INDICATION
     Route: 048
  6. MST                                /00036302/ [Suspect]
     Indication: DRUG USE FOR UNKNOWN INDICATION
     Route: 048
  7. METHOHEXITAL                       /00059602/ [Concomitant]
     Indication: DRUG USE FOR UNKNOWN INDICATION
     Route: 048
  8. PANTOZOL                           /01263202/ [Concomitant]
     Indication: DRUG USE FOR UNKNOWN INDICATION
     Route: 048
  9. RAMIPRIL [Concomitant]
     Indication: HYPERTENSION
     Route: 048
  10. NOVAMINSULFON [Concomitant]
     Indication: DRUG USE FOR UNKNOWN INDICATION
     Dosage: DOSE: NOT REPORTED
     Route: 048
  11. MOVICOL                            /01053601/ [Concomitant]
     Indication: DRUG USE FOR UNKNOWN INDICATION
     Dosage: DOSE: NOT REPORTED
     Route: 048
  12. BELOC ZOK [Concomitant]
     Indication: DRUG USE FOR UNKNOWN INDICATION
     Route: 048
  13. BORTEZOMIB [Concomitant]
     Indication: PLASMACYTOMA
     Dosage: DOSE: NOT REPORTED
     Dates: start: 20080601, end: 20081001
  14. BORTEZOMIB [Concomitant]
     Indication: CHEMOTHERAPY
     Dosage: DOSE: NOT REPORTED
     Dates: start: 20080601, end: 20081001
  15. BENDAMUSTINE [Concomitant]
     Indication: PLASMACYTOMA
     Dosage: DOSE: NOT REPORTED
     Dates: start: 20081101
  16. BENDAMUSTINE [Concomitant]
     Indication: CHEMOTHERAPY
     Dosage: DOSE: NOT REPORTED
     Dates: start: 20081101
  17. ALENDRONAT [Concomitant]
     Indication: DRUG USE FOR UNKNOWN INDICATION
     Route: 042
     Dates: start: 20080519

REACTIONS (4)
  - CARDIAC FAILURE [None]
  - DEEP VEIN THROMBOSIS [None]
  - ENCEPHALITIS [None]
  - PULMONARY EMBOLISM [None]
